FAERS Safety Report 15089549 (Version 3)
Quarter: 2018Q4

REPORT INFORMATION
  Report Type: Spontaneous
  Country: BR (occurrence: BR)
  Receive Date: 20180629
  Receipt Date: 20181029
  Transmission Date: 20190204
  Serious: Yes (Hospitalization, Other)
  Sender: FDA-Public Use
  Company Number: BR-B.I. PHARMACEUTICALS,INC./RIDGEFIELD-2018-BI-033149

PATIENT
  Age: 87 Year
  Sex: Male
  Weight: 85 kg

DRUGS (1)
  1. PRADAXA [Suspect]
     Active Substance: DABIGATRAN ETEXILATE MESYLATE
     Indication: ATRIAL FIBRILLATION
     Route: 065
     Dates: start: 2011

REACTIONS (1)
  - Ischaemic stroke [Not Recovered/Not Resolved]

NARRATIVE: CASE EVENT DATE: 20180624
